FAERS Safety Report 6426779-5 (Version None)
Quarter: 2009Q4

REPORT INFORMATION
  Report Type: 
  Country: None (occurrence: None)
  Receive Date: 20091104
  Receipt Date: 20091028
  Transmission Date: 20100525
  Serious: Yes (Other)
  Sender: FDA-Public Use
  Company Number: US-BAXTER-2009BH011023

PATIENT
  Age: 49 Year
  Sex: Male
  Weight: 127 kg

DRUGS (1)
  1. HEPARIN SODIUM INJECTION [Suspect]
     Indication: DRUG USE FOR UNKNOWN INDICATION
     Route: 065
     Dates: start: 20061101

REACTIONS (4)
  - COAGULOPATHY [None]
  - HYPERHIDROSIS [None]
  - HYPERSENSITIVITY [None]
  - PULMONARY EMBOLISM [None]
